FAERS Safety Report 6665388-X (Version None)
Quarter: 2010Q1

REPORT INFORMATION
  Report Type: 
  Country: None (occurrence: None)
  Receive Date: 20100323
  Receipt Date: 20100219
  Transmission Date: 20100710
  Serious: No
  Sender: FDA-Public Use
  Company Number: 100224-0000235

PATIENT
  Age: 42 Year
  Sex: Female

DRUGS (2)
  1. SABRIL [Suspect]
     Indication: DRUG USE FOR UNKNOWN INDICATION
     Dosage: 500; 250 MG; BID; PO
     Route: 048
     Dates: end: 20100215
  2. SABRIL [Suspect]
     Indication: DRUG USE FOR UNKNOWN INDICATION
     Dosage: 500; 250 MG; BID; PO
     Route: 048
     Dates: start: 20100216

REACTIONS (1)
  - SOMNOLENCE [None]
